FAERS Safety Report 21744553 (Version 1)
Quarter: 2022Q4

REPORT INFORMATION
  Report Type: Spontaneous
  Country: NO (occurrence: NO)
  Receive Date: 20221218
  Receipt Date: 20221218
  Transmission Date: 20230113
  Serious: Yes (Other)
  Sender: FDA-Public Use
  Company Number: None

PATIENT
  Age: 40 Year
  Sex: Female
  Weight: 67 kg

DRUGS (4)
  1. HUMIRA [Suspect]
     Active Substance: ADALIMUMAB
     Indication: Psoriatic arthropathy
     Route: 058
     Dates: start: 202202, end: 20221018
  2. Lactic Acid Bacteria [Concomitant]
     Indication: Product used for unknown indication
  3. Metex [Concomitant]
     Indication: Psoriatic arthropathy
     Dosage: DOSE: 15 MG/SYRINGE
     Dates: start: 202103, end: 202202
  4. OMEGA 3 [Concomitant]
     Active Substance: CAPSAICIN
     Indication: Product used for unknown indication

REACTIONS (8)
  - Syncope [Recovered/Resolved]
  - COVID-19 [Unknown]
  - Sleep disorder [Unknown]
  - Small fibre neuropathy [Recovering/Resolving]
  - Visual impairment [Unknown]
  - Palpitations [Recovered/Resolved]
  - Pain [Unknown]
  - Electric shock sensation [Unknown]

NARRATIVE: CASE EVENT DATE: 20220201
